FAERS Safety Report 9528985 (Version 1)
Quarter: 2013Q3

REPORT INFORMATION
  Report Type: Spontaneous
  Country: US (occurrence: US)
  Receive Date: 20130917
  Receipt Date: 20130917
  Transmission Date: 20140515
  Serious: No
  Sender: FDA-Public Use
  Company Number: US-PFIZER INC-2013267487

PATIENT
  Age: 53 Year
  Sex: Female
  Weight: 120 kg

DRUGS (7)
  1. NEURONTIN [Suspect]
     Indication: NERVE INJURY
     Dosage: 2400 MG, 1X/DAY
  2. NEURONTIN [Interacting]
     Indication: INTERVERTEBRAL DISC PROTRUSION
  3. XELJANZ [Interacting]
     Indication: RHEUMATOID ARTHRITIS
     Dosage: 5 MG, 2X/DAY
     Dates: start: 201308
  4. METOPROLOL TARTRATE [Interacting]
     Indication: HYPERTENSION
     Dosage: 50 MG, 1X/DAY
  5. NAPROXEN SODIUM [Interacting]
     Indication: RHEUMATOID ARTHRITIS
     Dosage: 500 MG, 2X/DAY
  6. PREDNISONE [Interacting]
     Dosage: 5 MG, ALTERNATE DAY
  7. PLAQUENIL [Interacting]
     Indication: RHEUMATOID ARTHRITIS
     Dosage: 200 MG, 2X/DAY

REACTIONS (2)
  - Drug interaction [Unknown]
  - Headache [Unknown]
